FAERS Safety Report 8246044-3 (Version None)
Quarter: 2012Q1

REPORT INFORMATION
  Report Type: 
  Country: None (occurrence: None)
  Receive Date: 20120330
  Receipt Date: 20120321
  Transmission Date: 20120608
  Serious: Yes (Hospitalization)
  Sender: FDA-Public Use
  Company Number: JP-JNJFOC-20120212464

PATIENT
  Sex: Female
  Weight: 60 kg

DRUGS (5)
  1. METHOTREXATE [Suspect]
     Dates: end: 20110428
  2. PREDNISOLONE [Suspect]
     Indication: RHEUMATOID ARTHRITIS
  3. METHOTREXATE [Suspect]
     Indication: RHEUMATOID ARTHRITIS
  4. SIMPONI [Suspect]
     Indication: RHEUMATOID ARTHRITIS
     Route: 058
     Dates: start: 20111017, end: 20111017
  5. OMEPRAZOLE [Concomitant]

REACTIONS (1)
  - PNEUMONIA [None]
